FAERS Safety Report 6918525-3 (Version None)
Quarter: 2010Q3

REPORT INFORMATION
  Report Type: 
  Country: None (occurrence: None)
  Receive Date: 20100722
  Receipt Date: 20100319
  Transmission Date: 20110219
  Serious: Yes (Hospitalization, Other)
  Sender: FDA-Public Use
  Company Number: 2010022285

PATIENT
  Sex: Female
  Weight: 17.2 kg

DRUGS (4)
  1. PRIVIGEN [Suspect]
     Indication: KAWASAKI'S DISEASE
     Dosage: (20 G, 20 GRAMD IN TOTAL, OVER 2 DAYS (OVER 3 DOSES?) INTRAVENOUS (NOT OTHERWISE SPECIFIED)), (5 GRA
     Route: 042
     Dates: start: 20100317, end: 20100318
  2. PRIVIGEN [Suspect]
  3. PRIVIGEN [Suspect]
  4. METHYLPREDNISOLONE SODIUM SUCCINATE [Concomitant]

REACTIONS (5)
  - ABDOMINAL PAIN [None]
  - ANAEMIA [None]
  - HAEMOGLOBINURIA [None]
  - HAEMOLYSIS [None]
  - HYPOTENSION [None]
